FAERS Safety Report 11485274 (Version 1)
Quarter: 2015Q3

REPORT INFORMATION
  Report Type: Spontaneous
  Country: US (occurrence: None)
  Receive Date: 20150909
  Receipt Date: 20150909
  Transmission Date: 20151125
  Serious: Yes (Hospitalization)
  Sender: FDA-Public Use
  Company Number: None

PATIENT
  Age: 69 Year
  Sex: Female
  Weight: 104.33 kg

DRUGS (8)
  1. FUROSEMIDE. [Concomitant]
     Active Substance: FUROSEMIDE
  2. LEVOTHYROXINE. [Concomitant]
     Active Substance: LEVOTHYROXINE
  3. DIAZEPAM. [Concomitant]
     Active Substance: DIAZEPAM
  4. METHLPREDNISOLONE [Suspect]
     Active Substance: METHYLPREDNISOLONE
     Indication: SPINAL PAIN
     Dosage: INJECTED INTO SPINAL AREA
  5. POTASSIUM [Concomitant]
     Active Substance: POTASSIUM
  6. TYLENAL [Concomitant]
  7. ATENOLOL. [Concomitant]
     Active Substance: ATENOLOL
  8. PRAVASTATIN [Concomitant]
     Active Substance: PRAVASTATIN\PRAVASTATIN SODIUM

REACTIONS (2)
  - Pain [None]
  - Urinary incontinence [None]

NARRATIVE: CASE EVENT DATE: 20150902
